FAERS Safety Report 11780319 (Version 1)
Quarter: 2015Q4

REPORT INFORMATION
  Report Type: Spontaneous
  Country: US (occurrence: US)
  Receive Date: 20151126
  Receipt Date: 20151126
  Transmission Date: 20160305
  Serious: No
  Sender: FDA-Public Use
  Company Number: US-JNJFOC-20150927187

PATIENT
  Age: 80 Year
  Sex: Female
  Weight: 61.24 kg

DRUGS (2)
  1. LOSARTAN. [Concomitant]
     Active Substance: LOSARTAN
     Indication: HYPERTENSION
     Dosage: DAILY SINCE 5-6 YEARS
     Route: 065
  2. TYLENOL [Suspect]
     Active Substance: ACETAMINOPHEN
     Indication: ARTHRALGIA
     Route: 048

REACTIONS (3)
  - Drug ineffective [Unknown]
  - Product container issue [Unknown]
  - Inappropriate schedule of drug administration [Unknown]
